FAERS Safety Report 9697643 (Version 1)
Quarter: 2013Q4

REPORT INFORMATION
  Report Type: Spontaneous
  Country: US (occurrence: US)
  Receive Date: 20131120
  Receipt Date: 20131120
  Transmission Date: 20140711
  Serious: Yes (Hospitalization)
  Sender: FDA-Public Use
  Company Number: US-PFIZER INC-2013327020

PATIENT
  Age: 82 Year
  Sex: Male
  Weight: 70.3 kg

DRUGS (3)
  1. VFEND [Suspect]
     Indication: PULMONARY MYCOSIS
     Dosage: 200 MG, 1X/DAY
     Route: 048
     Dates: start: 2013
  2. ASPIRIN [Concomitant]
     Dosage: 80 MG, UNK
  3. ATENOLOL [Concomitant]
     Dosage: UNK

REACTIONS (2)
  - Cerebrovascular accident [Unknown]
  - Weight decreased [Unknown]
